FAERS Safety Report 24986493 (Version 2)
Quarter: 2025Q1

REPORT INFORMATION
  Report Type: Spontaneous
  Country: US (occurrence: US)
  Receive Date: 20250219
  Receipt Date: 20250322
  Transmission Date: 20250408
  Serious: Yes (Hospitalization, Other)
  Sender: AIMMUNE
  Company Number: US-ZENPEP LLC-2025AIMT00130

PATIENT

DRUGS (19)
  1. ZENPEP [Suspect]
     Active Substance: PANCRELIPASE AMYLASE\PANCRELIPASE LIPASE\PANCRELIPASE PROTEASE
     Indication: Pancreatic failure
     Route: 048
     Dates: start: 20230807
  2. ZENPEP [Suspect]
     Active Substance: PANCRELIPASE AMYLASE\PANCRELIPASE LIPASE\PANCRELIPASE PROTEASE
     Route: 048
  3. ASPIRIN [Concomitant]
     Active Substance: ASPIRIN
     Indication: Product used for unknown indication
     Dosage: 81 MG, 1X/DAY
     Route: 048
  4. CALCIUM WITH VITAMIN D 3 [Concomitant]
     Indication: Product used for unknown indication
     Route: 048
  5. ZYRTEC [Concomitant]
     Active Substance: CETIRIZINE HYDROCHLORIDE
     Indication: Product used for unknown indication
     Route: 048
  6. PLAVIX [Concomitant]
     Active Substance: CLOPIDOGREL BISULFATE
     Indication: Product used for unknown indication
  7. FERROUS SULFATE [Concomitant]
     Active Substance: FERROUS SULFATE
     Indication: Product used for unknown indication
     Route: 048
  8. LASIX [Concomitant]
     Active Substance: FUROSEMIDE
     Indication: Product used for unknown indication
     Route: 048
  9. NORCO [Concomitant]
     Active Substance: ACETAMINOPHEN\HYDROCODONE BITARTRATE
     Indication: Product used for unknown indication
     Route: 048
  10. HUMULIN R [Concomitant]
     Active Substance: INSULIN HUMAN
     Indication: Product used for unknown indication
  11. IMDUR [Concomitant]
     Active Substance: ISOSORBIDE MONONITRATE
     Indication: Hypertension
     Route: 048
  12. SYNTHROID [Concomitant]
     Active Substance: LEVOTHYROXINE SODIUM
     Indication: Hypothyroidism
     Route: 048
  13. MEVACOR [Concomitant]
     Active Substance: LOVASTATIN
     Indication: Coronary artery disease
     Route: 048
  14. TOPROL XL [Concomitant]
     Active Substance: METOPROLOL SUCCINATE
     Indication: Coronary artery disease
     Route: 048
  15. VITAMINS [Concomitant]
     Active Substance: VITAMINS
     Indication: Product used for unknown indication
     Route: 048
  16. NITROSTAT [Concomitant]
     Active Substance: NITROGLYCERIN
     Indication: Product used for unknown indication
     Route: 060
  17. ZOFRAN [Concomitant]
     Active Substance: ONDANSETRON HYDROCHLORIDE
     Indication: Nausea
     Route: 048
  18. SELENIUM [Concomitant]
     Active Substance: SELENIUM
     Indication: Product used for unknown indication
     Route: 048
  19. DEPO-TESTOSTERONE [Concomitant]
     Active Substance: TESTOSTERONE CYPIONATE
     Indication: Hypogonadism

REACTIONS (22)
  - Sepsis [Recovered/Resolved]
  - Cholelithiasis [Recovered/Resolved]
  - Pancreatitis acute [Recovered/Resolved]
  - Cholecystitis acute [Recovered/Resolved]
  - Bile duct stone [Recovered/Resolved]
  - Arrhythmia [Unknown]
  - Acute kidney injury [Recovered/Resolved]
  - Hyperkalaemia [Recovered/Resolved]
  - Atrial fibrillation [Unknown]
  - Hypovolaemia [Recovered/Resolved]
  - Hyponatraemia [Recovered/Resolved]
  - Hypocalcaemia [Unknown]
  - Abdominal pain [Recovered/Resolved]
  - Vomiting [Recovered/Resolved]
  - Nausea [Recovered/Resolved]
  - Corneal abrasion [Unknown]
  - Anaemia [Unknown]
  - Back pain [Unknown]
  - Benign prostatic hyperplasia [Unknown]
  - Hyperparathyroidism [Unknown]
  - Visual impairment [Unknown]
  - Haemorrhagic disorder [Unknown]

NARRATIVE: CASE EVENT DATE: 20240424
